FAERS Safety Report 8782610 (Version 1)
Quarter: 2012Q4

REPORT INFORMATION
  Report Type: 
  Country: US (occurrence: US)
  Receive Date: 20120913
  Receipt Date: 20120913
  Transmission Date: 20130627
  Serious: No
  Sender: FDA-Public Use
  Company Number: US-VERTEX PHARMACEUTICAL INC.-AE-2012-010626

PATIENT
  Age: 54 Year
  Sex: Female
  Weight: 88.64 kg

DRUGS (8)
  1. INCIVEK [Suspect]
     Indication: HEPATITIS C
     Route: 048
     Dates: start: 20120714
  2. PEGASYS [Concomitant]
     Indication: HEPATITIS C
     Route: 058
     Dates: start: 20120713
  3. RIBAVIRIN [Concomitant]
     Indication: HEPATITIS C
     Route: 048
     Dates: start: 20120714
  4. SYNTHROID [Concomitant]
     Route: 048
  5. PERCOCET [Concomitant]
     Route: 048
  6. CELEXA [Concomitant]
     Route: 048
  7. VIVELLE-DOT [Concomitant]
     Indication: MENOPAUSE
     Route: 061
  8. OMEPRAZOLE [Concomitant]
     Route: 048

REACTIONS (3)
  - Cough [Not Recovered/Not Resolved]
  - Somnolence [Not Recovered/Not Resolved]
  - Pruritus [Not Recovered/Not Resolved]
